FAERS Safety Report 9445402 (Version 3)
Quarter: 2013Q3

REPORT INFORMATION
  Report Type: Spontaneous
  Country: IT (occurrence: None)
  Receive Date: 20130724
  Receipt Date: 20130807
  Transmission Date: 20140515
  Serious: Yes (Other)
  Sender: FDA-Public Use
  Company Number: 2013036992

PATIENT
  Age: 51 Year
  Sex: Male

DRUGS (1)
  1. PRIVIGEN [Suspect]
     Indication: NEUROPATHY PERIPHERAL
     Dosage: 35 G FOR 2 DAYS; 30 G FOR 3 DAYS, IV  (NOT OTHERWISE SPECIFIED)??NOT POSSIBLE TO BE PROVIDED AS DIFFERENT DOSES WERE USED
     Route: 042
     Dates: start: 20130610, end: 20130614

REACTIONS (4)
  - Skin exfoliation [None]
  - Dermatitis bullous [None]
  - Pruritus [None]
  - Off label use [None]
